FAERS Safety Report 13945907 (Version 1)
Quarter: 2017Q3

REPORT INFORMATION
  Report Type: Spontaneous
  Country: US (occurrence: US)
  Receive Date: 20170907
  Receipt Date: 20170907
  Transmission Date: 20171128
  Serious: No
  Sender: FDA-Public Use
  Company Number: US-ALLERGAN-1714261US

PATIENT
  Age: 75 Year
  Sex: Female

DRUGS (2)
  1. VIACTIV CALCIUM PLUS VITAMIN D + K [Concomitant]
     Dosage: UNK UNK, QD
     Route: 048
  2. FIORINAL [Suspect]
     Active Substance: ASPIRIN\BUTALBITAL\CAFFEINE
     Indication: MIGRAINE
     Dosage: 50/325/40 MG
     Route: 048

REACTIONS (2)
  - Headache [Recovered/Resolved]
  - Dry mouth [Recovered/Resolved]

NARRATIVE: CASE EVENT DATE: 20170407
